FAERS Safety Report 23363390 (Version 4)
Quarter: 2024Q1

REPORT INFORMATION
  Report Type: Report from Study
  Country: NL (occurrence: NL)
  Receive Date: 20240103
  Receipt Date: 20240216
  Transmission Date: 20240410
  Serious: Yes (Other)
  Sender: FDA-Public Use
  Company Number: NL-VER-202300104

PATIENT
  Age: 81 Year
  Sex: Male

DRUGS (6)
  1. TRIPTORELIN PAMOATE [Suspect]
     Active Substance: TRIPTORELIN PAMOATE
     Indication: Metastases to prostate
     Dosage: 6M
     Route: 030
     Dates: start: 20230619
  2. TRIPTORELIN PAMOATE [Suspect]
     Active Substance: TRIPTORELIN PAMOATE
     Indication: Prostate cancer
     Dosage: 6M
     Route: 030
     Dates: start: 20230619
  3. TRIPTORELIN PAMOATE [Suspect]
     Active Substance: TRIPTORELIN PAMOATE
     Indication: Metastases to prostate
     Dosage: 6M
     Route: 030
     Dates: start: 20231218
  4. TRIPTORELIN PAMOATE [Suspect]
     Active Substance: TRIPTORELIN PAMOATE
     Indication: Prostate cancer
     Dosage: 6M
     Route: 030
     Dates: start: 20231218
  5. TRIPTORELIN PAMOATE [Suspect]
     Active Substance: TRIPTORELIN PAMOATE
     Indication: Metastases to prostate
     Dosage: 6M
     Route: 030
     Dates: start: 20201214
  6. TRIPTORELIN PAMOATE [Suspect]
     Active Substance: TRIPTORELIN PAMOATE
     Indication: Prostate cancer
     Dosage: 6M
     Route: 030
     Dates: start: 20201214

REACTIONS (2)
  - Prostatic specific antigen increased [Not Recovered/Not Resolved]
  - Metastases to neck [Unknown]

NARRATIVE: CASE EVENT DATE: 20230927
